FAERS Safety Report 19701262 (Version 1)
Quarter: 2021Q3

REPORT INFORMATION
  Report Type: Spontaneous
  Country: US (occurrence: US)
  Receive Date: 20210813
  Receipt Date: 20210813
  Transmission Date: 20211014
  Serious: Yes (Other)
  Sender: FDA-Public Use
  Company Number: US-JNJFOC-20210815310

PATIENT
  Sex: Female

DRUGS (5)
  1. ENBREL [Concomitant]
     Active Substance: ETANERCEPT
  2. REMICADE [Suspect]
     Active Substance: INFLIXIMAB
     Indication: PRODUCT USED FOR UNKNOWN INDICATION
     Route: 042
  3. SULFASALAZINE. [Concomitant]
     Active Substance: SULFASALAZINE
  4. ERYTHROMYCIN. [Concomitant]
     Active Substance: ERYTHROMYCIN
  5. ARAVA [Concomitant]
     Active Substance: LEFLUNOMIDE

REACTIONS (1)
  - Anaphylactic reaction [Unknown]
